FAERS Safety Report 8973498 (Version 1)
Quarter: 2012Q4

REPORT INFORMATION
  Report Type: 
  Country: US (occurrence: US)
  Receive Date: 20121218
  Receipt Date: 20121218
  Transmission Date: 20130627
  Serious: Yes (Life-Threatening)
  Sender: FDA-Public Use
  Company Number: CHPA2012US024964

PATIENT

DRUGS (1)
  1. EXCEDRIN UNKNOWN [Suspect]
     Indication: MIGRAINE
     Dosage: UNK, UNK
     Route: 048

REACTIONS (1)
  - Hypersensitivity [Recovered/Resolved]
